FAERS Safety Report 16917536 (Version 4)
Quarter: 2019Q4

REPORT INFORMATION
  Report Type: Spontaneous
  Country: PT (occurrence: PT)
  Receive Date: 20191015
  Receipt Date: 20191223
  Transmission Date: 20200122
  Serious: Yes (Disabling, Other)
  Sender: FDA-Public Use
  Company Number: PT-AUROBINDO-AUR-APL-2019-066301

PATIENT
  Age: 61 Year
  Sex: Male

DRUGS (9)
  1. CALCIUM CARBONATE. [Concomitant]
     Active Substance: CALCIUM CARBONATE
     Indication: LUMBAR VERTEBRAL FRACTURE
     Dosage: 1500 MILLIGRAM, ONCE A DAY
     Route: 065
     Dates: start: 2015
  2. ALENDRONIC ACID 70 [Suspect]
     Active Substance: ALENDRONIC ACID
     Indication: LUMBAR VERTEBRAL FRACTURE
     Dosage: 70 MILLIGRAM, EVERY WEEK OVER 3 YEARS
     Route: 065
  3. CALCIUM CARBONATE. [Concomitant]
     Active Substance: CALCIUM CARBONATE
     Indication: PATHOLOGICAL FRACTURE PROPHYLAXIS
     Dosage: 1500 MILLIGRAM, ONCE A DAY
     Route: 065
     Dates: start: 201501
  4. VITAMIN D3 [Concomitant]
     Active Substance: CHOLECALCIFEROL
     Indication: LUMBAR VERTEBRAL FRACTURE
     Dosage: 400 INTERNATIONAL UNIT, ONCE A DAY
     Route: 065
     Dates: start: 2015
  5. VITAMIN D3 [Concomitant]
     Active Substance: CHOLECALCIFEROL
     Indication: OSTEOPOROSIS
  6. CALCIUM CARBONATE. [Concomitant]
     Active Substance: CALCIUM CARBONATE
     Indication: OSTEOPOROSIS
  7. ALENDRONIC ACID 70 [Suspect]
     Active Substance: ALENDRONIC ACID
     Indication: OSTEOPOROSIS
  8. VITAMIN D3 [Concomitant]
     Active Substance: CHOLECALCIFEROL
     Indication: PATHOLOGICAL FRACTURE PROPHYLAXIS
     Dosage: 400 INTERNATIONAL UNIT, ONCE A DAY
     Route: 065
     Dates: start: 201501
  9. ALENDRONIC ACID 70 [Suspect]
     Active Substance: ALENDRONIC ACID
     Indication: PATHOLOGICAL FRACTURE PROPHYLAXIS
     Dosage: 70 MILLIGRAM, EVERY WEEK OVER 3 YEARS
     Route: 065
     Dates: start: 201501

REACTIONS (5)
  - Bone pain [Unknown]
  - Bone density decreased [Unknown]
  - Atypical fracture [Unknown]
  - Tibia fracture [Unknown]
  - Product use issue [Unknown]

NARRATIVE: CASE EVENT DATE: 2015
